FAERS Safety Report 19457381 (Version 1)
Quarter: 2021Q2

REPORT INFORMATION
  Report Type: Spontaneous
  Country: US (occurrence: US)
  Receive Date: 20210624
  Receipt Date: 20210624
  Transmission Date: 20210717
  Serious: No
  Sender: FDA-Public Use
  Company Number: US-CADILA HEALTHCARE LIMITED-US-ZYDUS-051113

PATIENT
  Age: 79 Year
  Sex: Male

DRUGS (1)
  1. TAMSULOSIN HYDROCHLORIDE 0.4 MILLIGRAM CAPSULE [Suspect]
     Active Substance: TAMSULOSIN HYDROCHLORIDE
     Indication: URINARY TRACT INFECTION
     Dosage: 0.4 MILLIGRAM, QD
     Route: 048
     Dates: start: 202005

REACTIONS (3)
  - Product use in unapproved indication [Not Recovered/Not Resolved]
  - Drug ineffective for unapproved indication [Not Recovered/Not Resolved]
  - Urinary retention [Not Recovered/Not Resolved]

NARRATIVE: CASE EVENT DATE: 202005
